FAERS Safety Report 17347422 (Version 1)
Quarter: 2020Q1

REPORT INFORMATION
  Report Type: Report from Study
  Country: US (occurrence: US)
  Receive Date: 20200129
  Receipt Date: 20200129
  Transmission Date: 20200409
  Serious: No
  Sender: FDA-Public Use
  Company Number: US-EXELIXIS-CABO-19023056

PATIENT
  Sex: Male

DRUGS (15)
  1. NYSTATIN. [Concomitant]
     Active Substance: NYSTATIN
  2. TORSEMIDE. [Concomitant]
     Active Substance: TORSEMIDE
  3. BUPREN [Concomitant]
  4. ESCITALOPRAM [Concomitant]
     Active Substance: ESCITALOPRAM OXALATE
  5. OXYCODONE [Concomitant]
     Active Substance: OXYCODONE
  6. WARFARIN [Concomitant]
     Active Substance: WARFARIN
  7. ZOLPIDEM [Concomitant]
     Active Substance: ZOLPIDEM TARTRATE
  8. ALPRAZOLAM. [Concomitant]
     Active Substance: ALPRAZOLAM
  9. PERMETHRIN. [Concomitant]
     Active Substance: PERMETHRIN
  10. PROCHLORPERAZ [Concomitant]
     Active Substance: PROCHLORPERAZINE MALEATE
  11. BUPROPION. [Concomitant]
     Active Substance: BUPROPION
  12. LACTULOSE. [Concomitant]
     Active Substance: LACTULOSE
  13. PREDNISONE. [Concomitant]
     Active Substance: PREDNISONE
  14. CABOMETYX [Suspect]
     Active Substance: CABOZANTINIB S-MALATE
     Indication: RENAL CANCER
     Dosage: 60 MG, QD (EVERY MORNING)
     Route: 048
     Dates: start: 20190723
  15. NALOX [Concomitant]

REACTIONS (1)
  - Blood pressure decreased [Recovered/Resolved]
